FAERS Safety Report 17780017 (Version 11)
Quarter: 2021Q1

REPORT INFORMATION
  Report Type: Report from Study
  Country: JP (occurrence: JP)
  Receive Date: 20200514
  Receipt Date: 20210310
  Transmission Date: 20210419
  Serious: Yes (Hospitalization, Other)
  Sender: FDA-Public Use
  Company Number: JP-BRISTOL-MYERS SQUIBB COMPANY-BMS-2020-037841

PATIENT
  Age: 67 Year
  Sex: Male
  Weight: 57.7 kg

DRUGS (16)
  1. PREDONINE [Suspect]
     Active Substance: PREDNISOLONE
     Indication: LIVER DISORDER
     Dosage: MORNING 40MG, LUNCH 15MG
     Route: 048
     Dates: start: 20200623, end: 20200706
  2. IPILIMUMAB [Suspect]
     Active Substance: IPILIMUMAB
     Dosage: 1 MILLIGRAM/KILOGRAM, ONE TIME DOSE
     Route: 041
     Dates: start: 20200331, end: 20200331
  3. IPILIMUMAB [Suspect]
     Active Substance: IPILIMUMAB
     Dosage: 1 MILLIGRAM/KILOGRAM, ONE TIME DOSE
     Route: 041
     Dates: start: 20200420, end: 20200420
  4. IPILIMUMAB [Suspect]
     Active Substance: IPILIMUMAB
     Indication: METASTATIC RENAL CELL CARCINOMA
     Dosage: 1 MILLIGRAM/KILOGRAM, ONE TIME DOSE
     Route: 041
     Dates: start: 20200310, end: 20200310
  5. NIVOLUMAB [Suspect]
     Active Substance: NIVOLUMAB
     Dosage: 240 MILLIGRAM, ONE TIME DOSE
     Route: 065
     Dates: start: 20200331, end: 20200331
  6. NIVOLUMAB [Suspect]
     Active Substance: NIVOLUMAB
     Dosage: 240 MILLIGRAM, ONE TIME DOSE
     Route: 065
     Dates: start: 20200511, end: 20200511
  7. PREDONINE [Suspect]
     Active Substance: PREDNISOLONE
     Dosage: MORNING 20MG, LUNCH 10MG
     Route: 048
     Dates: start: 20200811, end: 20200817
  8. PREDONINE [Suspect]
     Active Substance: PREDNISOLONE
     Dosage: 20 MG IN MORNING, 5 MG AT NOON
     Route: 048
     Dates: start: 20200818, end: 20200824
  9. PREDONINE [Suspect]
     Active Substance: PREDNISOLONE
     Dosage: 20 MG IN MORNING
     Route: 048
     Dates: start: 20200825, end: 20200829
  10. NIVOLUMAB [Suspect]
     Active Substance: NIVOLUMAB
     Dosage: 240 MILLIGRAM, ONE TIME DOSE
     Route: 065
     Dates: start: 20200420, end: 20200420
  11. PREDONINE [Suspect]
     Active Substance: PREDNISOLONE
     Dosage: MORNING 30MG, LUNCH 20MG
     Route: 048
     Dates: start: 20200707, end: 20200720
  12. NIVOLUMAB [Suspect]
     Active Substance: NIVOLUMAB
     Indication: METASTATIC RENAL CELL CARCINOMA
     Dosage: 240 MILLIGRAM, ONE TIME DOSE
     Route: 041
     Dates: start: 20200310, end: 20200310
  13. PREDONINE [Suspect]
     Active Substance: PREDNISOLONE
     Dosage: MORNING 30MG, LUNCH 10MG
     Route: 048
     Dates: start: 20200721, end: 20200727
  14. PREDONINE [Suspect]
     Active Substance: PREDNISOLONE
     Dosage: MORNING 25MG, LUNCH 10MG
     Route: 048
     Dates: start: 20200728, end: 20200810
  15. IPILIMUMAB [Suspect]
     Active Substance: IPILIMUMAB
     Dosage: 1 MILLIGRAM/KILOGRAM, ONE TIME DOSE
     Route: 041
     Dates: start: 20200511, end: 20200511
  16. OLMESARTAN OD [Suspect]
     Active Substance: OLMESARTAN MEDOXOMIL
     Indication: HYPERTENSION
     Dosage: 1 TAB
     Route: 048
     Dates: start: 20190101, end: 20200313

REACTIONS (9)
  - Liver disorder [Recovering/Resolving]
  - Insomnia [Recovering/Resolving]
  - Myocarditis [Recovering/Resolving]
  - Hypothyroidism [Recovering/Resolving]
  - Pyrexia [Recovered/Resolved]
  - Steroid diabetes [Recovering/Resolving]
  - Blood pressure decreased [Recovering/Resolving]
  - Upper respiratory tract infection [Recovered/Resolved]
  - Stomatitis [Recovered/Resolved]

NARRATIVE: CASE EVENT DATE: 20200313
